FAERS Safety Report 8207657-8 (Version None)
Quarter: 2012Q1

REPORT INFORMATION
  Report Type: 
  Country: None (occurrence: None)
  Receive Date: 20120313
  Receipt Date: 20120313
  Transmission Date: 20120608
  Serious: No
  Sender: FDA-Public Use
  Company Number: None

PATIENT
  Sex: Female

DRUGS (1)
  1. PEGASYS [Suspect]
     Dosage: 180MCG ONCE WEEK SQ
     Route: 058
     Dates: start: 20120113, end: 20120309

REACTIONS (2)
  - BONE PAIN [None]
  - ALOPECIA [None]
